FAERS Safety Report 6372226-1 (Version None)
Quarter: 2009Q3

REPORT INFORMATION
  Report Type: 
  Country: None (occurrence: None)
  Receive Date: 20090924
  Receipt Date: 20090916
  Transmission Date: 20100115
  Serious: Yes (Hospitalization)
  Sender: FDA-Public Use
  Company Number: US-BIOGENIDEC-2009BI029728

PATIENT
  Age: 66 Year
  Sex: Male

DRUGS (2)
  1. TYSABRI [Suspect]
     Indication: MULTIPLE SCLEROSIS
     Route: 042
     Dates: start: 20041222, end: 20050216
  2. TYSABRI [Suspect]
     Route: 042
     Dates: start: 20070403

REACTIONS (3)
  - ASTHENIA [None]
  - ASTHMA [None]
  - MYOCARDIAL INFARCTION [None]
